FAERS Safety Report 7410676-2 (Version None)
Quarter: 2011Q2

REPORT INFORMATION
  Report Type: 
  Country: None (occurrence: None)
  Receive Date: 20110405
  Receipt Date: 20110321
  Transmission Date: 20111010
  Serious: Yes (Other)
  Sender: FDA-Public Use
  Company Number: 1000019221

PATIENT
  Age: 51 Year
  Sex: Female

DRUGS (9)
  1. CO-CODAMOL (PARACETAMOL, CODEINE) (PARACETAMOL, CODEINE) [Concomitant]
  2. DICLOFENAC SODIUM [Concomitant]
  3. OXYCODONE HCL [Concomitant]
  4. CITALOPRAM HYDROBROMIDE [Suspect]
     Indication: DEPRESSION
     Dosage: 120 MG (120 MG, 1 IN 1 D), ORAL; 80 MG (80 MG, 1 IN 1 D), ORAL; 60 MG (60 MG, 1 IN 1 D), ORAL
     Route: 048
     Dates: start: 20110218
  5. CITALOPRAM HYDROBROMIDE [Suspect]
     Indication: DEPRESSION
     Dosage: 120 MG (120 MG, 1 IN 1 D), ORAL; 80 MG (80 MG, 1 IN 1 D), ORAL; 60 MG (60 MG, 1 IN 1 D), ORAL
     Route: 048
     Dates: start: 20110119, end: 20110207
  6. CITALOPRAM HYDROBROMIDE [Suspect]
     Indication: DEPRESSION
     Dosage: 120 MG (120 MG, 1 IN 1 D), ORAL; 80 MG (80 MG, 1 IN 1 D), ORAL; 60 MG (60 MG, 1 IN 1 D), ORAL
     Route: 048
     Dates: start: 20110208, end: 20110217
  7. SALBUTAMOL (SALBUTAMOL) (SALBUTAMOL) [Concomitant]
  8. CITALOPRAM HYDROBROMIDE [Suspect]
     Indication: DEPRESSION
     Dosage: 20 MG (20 MG, 1 IN 1 D), ORAL; 40 MG (40 MG, 1 IN 1 D), ORAL
     Route: 048
     Dates: start: 20080901, end: 20090901
  9. CITALOPRAM HYDROBROMIDE [Suspect]
     Indication: DEPRESSION
     Dosage: 20 MG (20 MG, 1 IN 1 D), ORAL; 40 MG (40 MG, 1 IN 1 D), ORAL
     Route: 048
     Dates: start: 20090901, end: 20110118

REACTIONS (5)
  - ACCIDENTAL OVERDOSE [None]
  - URINARY TRACT INFECTION [None]
  - ANXIETY [None]
  - HEADACHE [None]
  - FEELING HOT [None]
